FAERS Safety Report 17950082 (Version 1)
Quarter: 2020Q2

REPORT INFORMATION
  Report Type: Spontaneous
  Country: US (occurrence: US)
  Receive Date: 20200626
  Receipt Date: 20200626
  Transmission Date: 20200714
  Serious: No
  Sender: FDA-Public Use
  Company Number: US-D.O.R.C. INTERNATIONAL, B.V.-2086711

PATIENT
  Age: 67 Year
  Sex: Male

DRUGS (1)
  1. TISSUEBLUE [Suspect]
     Active Substance: BRILLIANT BLUE G

REACTIONS (1)
  - Endophthalmitis [Recovered/Resolved]

NARRATIVE: CASE EVENT DATE: 20200518
